FAERS Safety Report 21251890 (Version 1)
Quarter: 2022Q3

REPORT INFORMATION
  Report Type: Spontaneous
  Country: FR (occurrence: FR)
  Receive Date: 20220825
  Receipt Date: 20220825
  Transmission Date: 20221027
  Serious: Yes (Other)
  Sender: FDA-Public Use
  Company Number: None

PATIENT
  Sex: Female
  Weight: 85 kg

DRUGS (1)
  1. PACLITAXEL [Suspect]
     Active Substance: PACLITAXEL
     Indication: Breast cancer
     Dosage: UNIT DOSE: 139 MG, DURATION-56 DAYS
     Dates: start: 20220210, end: 20220407

REACTIONS (4)
  - Aphthous ulcer [Not Recovered/Not Resolved]
  - Epistaxis [Not Recovered/Not Resolved]
  - Hand-foot-and-mouth disease [Recovering/Resolving]
  - Rash papular [Recovering/Resolving]

NARRATIVE: CASE EVENT DATE: 20220314
